FAERS Safety Report 6534532-7 (Version None)
Quarter: 2010Q1

REPORT INFORMATION
  Report Type: 
  Country: None (occurrence: None)
  Receive Date: 20100112
  Receipt Date: 20100104
  Transmission Date: 20100710
  Serious: Yes (Other)
  Sender: FDA-Public Use
  Company Number: US-JNJFOC-20100100476

PATIENT
  Sex: Female
  Weight: 58.97 kg

DRUGS (1)
  1. DOXIL [Suspect]
     Indication: OVARIAN CANCER
     Route: 042

REACTIONS (6)
  - ARTHROPATHY [None]
  - DYSPNOEA [None]
  - HYPOXIA [None]
  - LYMPHADENECTOMY [None]
  - TENDINOUS CONTRACTURE [None]
  - TENDON DISORDER [None]
